FAERS Safety Report 7516959-X (Version None)
Quarter: 2011Q2

REPORT INFORMATION
  Report Type: 
  Country: None (occurrence: None)
  Receive Date: 20110502
  Receipt Date: 20110203
  Transmission Date: 20111010
  Serious: Yes (Other)
  Sender: FDA-Public Use
  Company Number: AMAG201100020

PATIENT
  Age: 75 Year
  Sex: Male
  Weight: 73.9 kg

DRUGS (13)
  1. ATENOLOL [Concomitant]
  2. ACETAMINOPHEN [Concomitant]
  3. ZEMPLAR [Concomitant]
  4. FERAHEME [Suspect]
     Indication: IRON DEFICIENCY ANAEMIA
     Dosage: MG, SINGLE, INTRAVENOUS
     Route: 042
     Dates: start: 20110201, end: 20110201
  5. CALCITROL (CALCIUM CARBONATE, ERGOCALCIFEROL, RETINOL) [Concomitant]
  6. HYDRALAZINE HCL [Concomitant]
  7. PERCOCET-5 [Concomitant]
  8. SODIUM BICARBONATE IN PLASTIC CONTAINER [Concomitant]
  9. ZANTAC [Concomitant]
  10. COLACE (DOCUSATE SODIUM) [Concomitant]
  11. NORVASC [Concomitant]
  12. PLAVIX [Concomitant]
  13. SENNA (SENNA ALEXANDRINA) [Concomitant]

REACTIONS (3)
  - HYPERTENSION [None]
  - LOSS OF CONSCIOUSNESS [None]
  - DROOLING [None]
